FAERS Safety Report 8355704-5 (Version None)
Quarter: 2012Q2

REPORT INFORMATION
  Report Type: 
  Country: None (occurrence: None)
  Receive Date: 20120514
  Receipt Date: 20120501
  Transmission Date: 20120825
  Serious: Yes (Death, Hospitalization, Other)
  Sender: FDA-Public Use
  Company Number: ES-PAR PHARMACEUTICAL, INC-2012SCPR004363

PATIENT

DRUGS (7)
  1. METFORMIN HCL [Suspect]
     Indication: PRODUCT USED FOR UNKNOWN INDICATION
     Dosage: 850 MG, EVERY 8 HOURS
     Route: 065
  2. IBUPROFEN [Suspect]
     Dosage: OCCASSIONALLY
  3. ACENOCOUMAROL [Concomitant]
     Indication: PRODUCT USED FOR UNKNOWN INDICATION
     Dosage: UNK, UNKNOWN
     Route: 065
  4. GLIPIZIDE [Concomitant]
     Indication: PRODUCT USED FOR UNKNOWN INDICATION
     Dosage: 5 MG, / DAY
     Route: 065
  5. LISINOPRIL AND HYDROCHLOROTHIAZIDE [Concomitant]
     Indication: PRODUCT USED FOR UNKNOWN INDICATION
     Dosage: 20/12.5 MG / DAY
     Route: 065
  6. IBUPROFEN [Suspect]
     Indication: BONE PAIN
     Dosage: 600 MG, EVERY 8 HOURS
     Route: 065
  7. LERCANIDIPINE [Concomitant]
     Indication: PRODUCT USED FOR UNKNOWN INDICATION
     Dosage: 10 MG, / DAY
     Route: 065

REACTIONS (7)
  - MENINGITIS PNEUMOCOCCAL [None]
  - DEATH [None]
  - LUNG INFILTRATION [None]
  - LACTIC ACIDOSIS [None]
  - BLOOD CREATININE INCREASED [None]
  - GENERAL PHYSICAL HEALTH DETERIORATION [None]
  - PROTHROMBIN LEVEL DECREASED [None]
